FAERS Safety Report 7724860-1 (Version None)
Quarter: 2011Q3

REPORT INFORMATION
  Report Type: 
  Country: None (occurrence: None)
  Receive Date: 20110901
  Receipt Date: 20110823
  Transmission Date: 20111222
  Serious: Yes (Other)
  Sender: FDA-Public Use
  Company Number: US-ELI_LILLY_AND_COMPANY-US201106004775

PATIENT
  Sex: Female
  Weight: 85.4 kg

DRUGS (13)
  1. CALCIUM WITH VITAMIN D [Concomitant]
  2. NIFEDIPINE [Concomitant]
     Dosage: 30 MG, QD
  3. FUROSEMIDE [Concomitant]
     Dosage: 20 MG, PRN
  4. COMBIVENT [Concomitant]
  5. ADCIRCA [Suspect]
     Indication: PULMONARY HYPERTENSION
     Dosage: 40 MG, QD
     Dates: start: 20110613
  6. BUPROPION HCL [Concomitant]
     Dosage: 150 MG, QD
  7. ABILIFY [Concomitant]
     Dosage: 5 MG, QD
  8. SYMBICORT [Concomitant]
     Dosage: 2 DF, BID
  9. TOPROL-XL [Concomitant]
     Dosage: 25 MG, QD
  10. FOSAMAX [Concomitant]
  11. BENICAR [Concomitant]
     Dosage: 20 MG, QD
  12. ASPIRIN [Concomitant]
     Dosage: 81 MG, QD
  13. ATIVAN [Concomitant]

REACTIONS (2)
  - ANGIOEDEMA [None]
  - HYPOTENSION [None]
